FAERS Safety Report 8563871 (Version 2)
Quarter: 2012Q4

REPORT INFORMATION
  Report Type: 
  Country: CA (occurrence: CA)
  Receive Date: 20120515
  Receipt Date: 20121115
  Transmission Date: 20130627
  Serious: Yes (Other)
  Sender: FDA-Public Use
  Company Number: CA-ELI_LILLY_AND_COMPANY-CA201205001330

PATIENT
  Age: 58 Year
  Sex: Female

DRUGS (11)
  1. FORTEO [Suspect]
     Indication: OSTEOPOROSIS
     Dosage: 20 ug, qd
     Route: 058
     Dates: start: 20110810
  2. OXYCONTIN [Concomitant]
  3. REMERON [Concomitant]
  4. CYMBALTA [Concomitant]
  5. NORVASC [Concomitant]
  6. ALTACE [Concomitant]
  7. ELAVIL [Concomitant]
  8. CALCIUM [Concomitant]
  9. VITAMIN D NOS [Concomitant]
  10. SEROQUEL [Concomitant]
  11. SENNA [Concomitant]

REACTIONS (3)
  - Hip arthroplasty [Unknown]
  - Bone cyst [Unknown]
  - Pain [Not Recovered/Not Resolved]
